FAERS Safety Report 22064685 (Version 3)
Quarter: 2023Q1

REPORT INFORMATION
  Report Type: Report from Study
  Country: US (occurrence: US)
  Receive Date: 20230306
  Receipt Date: 20230328
  Transmission Date: 20230417
  Serious: Yes (Hospitalization)
  Sender: FDA-Public Use
  Company Number: US-JNJFOC-20230244245

PATIENT
  Age: 61 Year
  Sex: Male
  Weight: 88.6 kg

DRUGS (3)
  1. EPOPROSTENOL SODIUM [Suspect]
     Active Substance: EPOPROSTENOL SODIUM
     Indication: Pulmonary arterial hypertension
     Route: 042
  2. OPSUMIT [Concomitant]
     Active Substance: MACITENTAN
  3. ADEMPAS [Concomitant]
     Active Substance: RIOCIGUAT

REACTIONS (4)
  - Vascular device occlusion [Unknown]
  - Vascular device infection [Unknown]
  - Catheter site infection [Unknown]
  - Underdose [Unknown]

NARRATIVE: CASE EVENT DATE: 20230228
